FAERS Safety Report 8928786 (Version 1)
Quarter: 2012Q4

REPORT INFORMATION
  Report Type: 
  Country: GB (occurrence: GB)
  Receive Date: 20121127
  Receipt Date: 20121127
  Transmission Date: 20130627
  Serious: Yes (Hospitalization, Other)
  Sender: FDA-Public Use
  Company Number: GB-PFIZER INC-2012293825

PATIENT
  Age: 64 Year
  Sex: Female
  Weight: 111 kg

DRUGS (5)
  1. GENOTROPIN [Suspect]
     Dosage: 0.4 mg, 1x/day, 7injection/week
     Route: 058
     Dates: start: 20020607
  2. PARACETAMOL [Concomitant]
     Indication: SENSORY DISTURBANCE
     Dosage: UNK
     Dates: start: 19950701
  3. VOLTAROL [Concomitant]
     Indication: ARTHRITIS NOS
     Dosage: UNK
     Dates: start: 19950701
  4. FOSINOPRIL [Concomitant]
     Indication: ESSENTIAL HYPERTENSION
     Dosage: UNK
     Dates: start: 19960415
  5. ACETYLSALICYLIC ACID [Concomitant]
     Indication: PROPHYLAXIS
     Dosage: UNK
     Dates: start: 19981215

REACTIONS (2)
  - Lower respiratory tract infection [Unknown]
  - Bone disorder [Unknown]
